FAERS Safety Report 4667675-3 (Version None)
Quarter: 2005Q2

REPORT INFORMATION
  Report Type: 
  Country: None (occurrence: None)
  Receive Date: 20050520
  Receipt Date: 20050215
  Transmission Date: 20051028
  Serious: Yes (Other)
  Sender: FDA-Public Use
  Company Number: US-GLAXOSMITHKLINE-A0546248A

PATIENT
  Sex: Male

DRUGS (9)
  1. CITRUCEL CAPLETS [Suspect]
     Indication: GASTROINTESTINAL DISORDER
     Route: 048
  2. PLAVIX [Concomitant]
     Indication: ANGIOPLASTY
  3. ZOCOR [Concomitant]
     Indication: ANGIOPLASTY
  4. VIOXX [Concomitant]
  5. ALTACE [Concomitant]
     Indication: ANGIOPLASTY
  6. ATENOLOL [Concomitant]
  7. FISH OIL [Concomitant]
  8. PROSCAR [Concomitant]
     Indication: BENIGN PROSTATIC HYPERPLASIA
  9. FLOMAX [Concomitant]
     Indication: BENIGN PROSTATIC HYPERPLASIA

REACTIONS (1)
  - GLUCOSE TOLERANCE IMPAIRED [None]
